FAERS Safety Report 9106444 (Version 2)
Quarter: 2013Q1

REPORT INFORMATION
  Report Type: Spontaneous
  Country: US (occurrence: US)
  Receive Date: 20130221
  Receipt Date: 20130319
  Transmission Date: 20140127
  Serious: No
  Sender: FDA-Public Use
  Company Number: US-ASTRAZENECA-2013SE09813

PATIENT
  Age: 36 Year
  Sex: Male
  Weight: 99.8 kg

DRUGS (1)
  1. PULMICORT FLEXHALER [Suspect]
     Indication: ASTHMA
     Dosage: 180 MCG, 2 PUFFS, DAILY
     Route: 055
     Dates: start: 200908

REACTIONS (2)
  - Asthma [Not Recovered/Not Resolved]
  - Circumstance or information capable of leading to medication error [Unknown]
